FAERS Safety Report 4523579-8 (Version None)
Quarter: 2004Q4

REPORT INFORMATION
  Report Type: 
  Country: None (occurrence: None)
  Receive Date: 20041209
  Receipt Date: 20041209
  Transmission Date: 20050328
  Serious: Yes (Hospitalization)
  Sender: FDA-Public Use
  Company Number: None

PATIENT
  Age: 4 Year
  Sex: Female
  Weight: 15.7 kg

DRUGS (2)
  1. PHENOBARBITAL [Suspect]
     Indication: CONVULSION
     Dosage: 30MG  TID   ORAL
     Route: 048
  2. DIPHENHYDRAMINE [Concomitant]

REACTIONS (8)
  - AGITATION [None]
  - EYE DISCHARGE [None]
  - EYE DISORDER [None]
  - EYE REDNESS [None]
  - IRRITABILITY [None]
  - MALAISE [None]
  - PYREXIA [None]
  - STEVENS-JOHNSON SYNDROME [None]
